FAERS Safety Report 5566104-5 (Version None)
Quarter: 2007Q4

REPORT INFORMATION
  Report Type: 
  Country: None (occurrence: None)
  Receive Date: 20071219
  Receipt Date: 20071214
  Transmission Date: 20080405
  Serious: Yes (Hospitalization)
  Sender: FDA-Public Use
  Company Number: PHEH2007US14649

PATIENT
  Sex: Female

DRUGS (4)
  1. LOPRESSOR [Suspect]
  2. COREG [Concomitant]
  3. NORVASC [Concomitant]
  4. PROCARDIA [Concomitant]

REACTIONS (2)
  - HYPERSENSITIVITY [None]
  - TONGUE DISORDER [None]
